FAERS Safety Report 6020725-4 (Version None)
Quarter: 2008Q4

REPORT INFORMATION
  Report Type: 
  Country: None (occurrence: None)
  Receive Date: 20081223
  Receipt Date: 20081223
  Transmission Date: 20090506
  Serious: Yes (Other)
  Sender: FDA-Public Use
  Company Number: None

PATIENT
  Age: 74 Year
  Sex: Male

DRUGS (1)
  1. TESTOSTERONE [Suspect]
     Dosage: INJECT 1ML EVERY WEEK, HAS BEEN ON 3 DIFFERENT GENERIC PAST 3 OR 4

REACTIONS (5)
  - ANXIETY [None]
  - COUGH [None]
  - DYSPNOEA [None]
  - NAUSEA [None]
  - PRODUCT QUALITY ISSUE [None]
